FAERS Safety Report 24182832 (Version 4)
Quarter: 2025Q4

REPORT INFORMATION
  Report Type: Report from Study
  Country: EU (occurrence: EU)
  Receive Date: 20240807
  Receipt Date: 20251201
  Transmission Date: 20260118
  Serious: Yes (Hospitalization, Other)
  Sender: ALEXION PHARMACEUTICALS
  Company Number: 2024A172752

PATIENT
  Age: 86 Year
  Sex: Male
  Weight: 68 kg

DRUGS (63)
  1. CALQUENCE [Suspect]
     Active Substance: ACALABRUTINIB
     Indication: Chronic lymphocytic leukaemia
     Dosage: 200 MILLIGRAM, QD
     Dates: start: 20210903
  2. PRIVIGEN [Suspect]
     Active Substance: HUMAN IMMUNOGLOBULIN G
     Indication: Secondary immunodeficiency
     Dosage: 30 G, TOT
     Dates: start: 20240606, end: 20240606
  3. PRIVIGEN [Suspect]
     Active Substance: HUMAN IMMUNOGLOBULIN G
     Indication: Secondary immunodeficiency
     Dosage: 30 G, TOT
     Dates: start: 20240404
  4. PRIVIGEN [Suspect]
     Active Substance: HUMAN IMMUNOGLOBULIN G
     Indication: Chronic lymphocytic leukaemia
     Dosage: 30 G, TOT
     Dates: start: 20240502
  5. PRIVIGEN [Suspect]
     Active Substance: HUMAN IMMUNOGLOBULIN G
     Dosage: UNK
  6. PRIVIGEN [Suspect]
     Active Substance: HUMAN IMMUNOGLOBULIN G
     Dosage: UNK
  7. PRIVIGEN [Suspect]
     Active Substance: HUMAN IMMUNOGLOBULIN G
     Dosage: UNK
  8. PRIVIGEN [Suspect]
     Active Substance: HUMAN IMMUNOGLOBULIN G
     Dosage: 30 G, QMT
     Dates: start: 20240606, end: 20240606
  9. PRIVIGEN [Suspect]
     Active Substance: HUMAN IMMUNOGLOBULIN G
     Dosage: 30 G
  10. PRIVIGEN [Suspect]
     Active Substance: HUMAN IMMUNOGLOBULIN G
     Dosage: 30 G
  11. PRIVIGEN [Suspect]
     Active Substance: HUMAN IMMUNOGLOBULIN G
     Dosage: 30 G
  12. PRIVIGEN [Suspect]
     Active Substance: HUMAN IMMUNOGLOBULIN G
     Dosage: 30 G, QMT
     Dates: start: 20250206, end: 20250206
  13. PRIVIGEN [Suspect]
     Active Substance: HUMAN IMMUNOGLOBULIN G
     Dosage: 30 G
  14. PRIVIGEN [Suspect]
     Active Substance: HUMAN IMMUNOGLOBULIN G
     Dosage: 30 G
  15. PRIVIGEN [Suspect]
     Active Substance: HUMAN IMMUNOGLOBULIN G
     Dosage: 30 G
  16. PRIVIGEN [Suspect]
     Active Substance: HUMAN IMMUNOGLOBULIN G
     Dosage: 30 G, QMT
     Dates: start: 20250612, end: 20250612
  17. PRIVIGEN [Suspect]
     Active Substance: HUMAN IMMUNOGLOBULIN G
     Dosage: 30 G
  18. PRIVIGEN [Suspect]
     Active Substance: HUMAN IMMUNOGLOBULIN G
     Dosage: 30 G
  19. PRIVIGEN [Suspect]
     Active Substance: HUMAN IMMUNOGLOBULIN G
     Dosage: 30 G, QMT
     Dates: start: 20251002, end: 20251002
  20. PRIVIGEN [Suspect]
     Active Substance: HUMAN IMMUNOGLOBULIN G
     Dosage: 30 G
  21. CLEMASTINE [Concomitant]
     Active Substance: CLEMASTINE
     Indication: Premedication
     Dosage: 2 MG
  22. CLEMASTINE [Concomitant]
     Active Substance: CLEMASTINE
     Indication: Premedication
  23. PREDNISOLONE [Concomitant]
     Active Substance: PREDNISOLONE
     Indication: Premedication
     Dosage: 50 MG
  24. PREDNISOLONE [Concomitant]
     Active Substance: PREDNISOLONE
     Indication: Premedication
  25. TORSEMIDE [Concomitant]
     Active Substance: TORSEMIDE
     Indication: Tumour vaccine therapy
  26. TORSEMIDE [Concomitant]
     Active Substance: TORSEMIDE
  27. TORSEMIDE [Concomitant]
     Active Substance: TORSEMIDE
  28. TORSEMIDE [Concomitant]
     Active Substance: TORSEMIDE
  29. TORSEMIDE [Concomitant]
     Active Substance: TORSEMIDE
  30. ATORVASTATIN [Concomitant]
     Active Substance: ATORVASTATIN
     Indication: Tumour vaccine therapy
  31. ATORVASTATIN [Concomitant]
     Active Substance: ATORVASTATIN
  32. ATORVASTATIN [Concomitant]
     Active Substance: ATORVASTATIN
  33. ATORVASTATIN [Concomitant]
     Active Substance: ATORVASTATIN
  34. ATORVASTATIN [Concomitant]
     Active Substance: ATORVASTATIN
  35. APIXABAN [Concomitant]
     Active Substance: APIXABAN
     Indication: Tumour vaccine therapy
  36. APIXABAN [Concomitant]
     Active Substance: APIXABAN
  37. APIXABAN [Concomitant]
     Active Substance: APIXABAN
  38. APIXABAN [Concomitant]
     Active Substance: APIXABAN
  39. APIXABAN [Concomitant]
     Active Substance: APIXABAN
  40. ACALABRUTINIB [Concomitant]
     Active Substance: ACALABRUTINIB
     Indication: Tumour vaccine therapy
     Dosage: 200 MG
  41. ACALABRUTINIB [Concomitant]
     Active Substance: ACALABRUTINIB
     Dosage: 200 MG
  42. ACALABRUTINIB [Concomitant]
     Active Substance: ACALABRUTINIB
     Dosage: UNK
  43. ACALABRUTINIB [Concomitant]
     Active Substance: ACALABRUTINIB
     Dosage: UNK
  44. ESOMEPRAZOLE [Concomitant]
     Active Substance: ESOMEPRAZOLE
     Indication: Tumour vaccine therapy
  45. ESOMEPRAZOLE [Concomitant]
     Active Substance: ESOMEPRAZOLE
  46. ESOMEPRAZOLE [Concomitant]
     Active Substance: ESOMEPRAZOLE
  47. ESOMEPRAZOLE [Concomitant]
     Active Substance: ESOMEPRAZOLE
  48. ESOMEPRAZOLE [Concomitant]
     Active Substance: ESOMEPRAZOLE
  49. EMPAGLIFLOZIN [Concomitant]
     Active Substance: EMPAGLIFLOZIN
     Indication: Tumour vaccine therapy
  50. EMPAGLIFLOZIN [Concomitant]
     Active Substance: EMPAGLIFLOZIN
  51. EMPAGLIFLOZIN [Concomitant]
     Active Substance: EMPAGLIFLOZIN
  52. EMPAGLIFLOZIN [Concomitant]
     Active Substance: EMPAGLIFLOZIN
  53. EMPAGLIFLOZIN [Concomitant]
     Active Substance: EMPAGLIFLOZIN
  54. METOPROLOL SUCCINATE [Concomitant]
     Active Substance: METOPROLOL SUCCINATE
     Indication: Tumour vaccine therapy
  55. METOPROLOL SUCCINATE [Concomitant]
     Active Substance: METOPROLOL SUCCINATE
  56. METOPROLOL SUCCINATE [Concomitant]
     Active Substance: METOPROLOL SUCCINATE
  57. METOPROLOL SUCCINATE [Concomitant]
     Active Substance: METOPROLOL SUCCINATE
  58. METOPROLOL SUCCINATE [Concomitant]
     Active Substance: METOPROLOL SUCCINATE
  59. RAMIPRIL [Concomitant]
     Active Substance: RAMIPRIL
     Indication: Tumour vaccine therapy
  60. RAMIPRIL [Concomitant]
     Active Substance: RAMIPRIL
  61. RAMIPRIL [Concomitant]
     Active Substance: RAMIPRIL
  62. RAMIPRIL [Concomitant]
     Active Substance: RAMIPRIL
  63. RAMIPRIL [Concomitant]
     Active Substance: RAMIPRIL

REACTIONS (7)
  - Acquired phimosis [Recovered/Resolved]
  - Ureteral wall thickening [Recovered/Resolved]
  - Balanoposthitis [Recovered/Resolved]
  - Syncope [Recovered/Resolved]
  - Arterial perforation [Recovered/Resolved]
  - Shock haemorrhagic [Recovered/Resolved]
  - Pain in extremity [Unknown]

NARRATIVE: CASE EVENT DATE: 20240709
